FAERS Safety Report 4760580-3 (Version None)
Quarter: 2005Q3

REPORT INFORMATION
  Report Type: 
  Country: None (occurrence: None)
  Receive Date: 20050902
  Receipt Date: 20050822
  Transmission Date: 20060218
  Serious: Yes (Death, Hospitalization)
  Sender: FDA-Public Use
  Company Number: DE-MERCK-0508DEU00172

PATIENT
  Age: 9 Year
  Sex: Male

DRUGS (4)
  1. COSMOGEN [Suspect]
     Indication: RHABDOMYOSARCOMA
     Route: 065
  2. VINCRISTINE SULFATE [Suspect]
     Indication: RHABDOMYOSARCOMA
     Route: 065
  3. IFOSFAMIDE [Suspect]
     Indication: RHABDOMYOSARCOMA
     Route: 065
  4. DOXORUBICIN HYDROCHLORIDE [Suspect]
     Indication: RHABDOMYOSARCOMA
     Route: 065

REACTIONS (3)
  - METASTASES TO LIVER [None]
  - METASTASES TO LUNG [None]
  - RECTAL CANCER METASTATIC [None]
